FAERS Safety Report 10190816 (Version 3)
Quarter: 2014Q2

REPORT INFORMATION
  Report Type: Spontaneous
  Country: TR (occurrence: TR)
  Receive Date: 20140523
  Receipt Date: 20140607
  Transmission Date: 20141212
  Serious: Yes (Life-Threatening, Hospitalization)
  Sender: FDA-Public Use
  Company Number: PHHY2014TR062146

PATIENT
  Age: 10 Year
  Sex: Male
  Weight: 36 kg

DRUGS (2)
  1. EXJADE [Suspect]
     Indication: IRON OVERLOAD
     Dosage: 500 MG, UNK
     Route: 048
     Dates: start: 20120426, end: 20140414
  2. EXJADE [Suspect]
     Indication: HEREDITARY SPHEROCYTOSIS
     Dosage: UNK UKN, UNK

REACTIONS (8)
  - Intestinal perforation [Recovered/Resolved]
  - Duodenal ulcer perforation [Recovered/Resolved]
  - Gastric perforation [Recovered/Resolved]
  - Melaena [Unknown]
  - Abdominal tenderness [Unknown]
  - Dyspepsia [Unknown]
  - Abdominal pain [Unknown]
  - Abdominal pain upper [Unknown]
